FAERS Safety Report 6172149-7 (Version None)
Quarter: 2009Q2

REPORT INFORMATION
  Report Type: 
  Country: None (occurrence: None)
  Receive Date: 20090429
  Receipt Date: 20090429
  Transmission Date: 20091009
  Serious: Yes (Other)
  Sender: FDA-Public Use
  Company Number: US-PFIZER INC-2007076028

PATIENT
  Sex: Female
  Weight: 64 kg

DRUGS (5)
  1. CHANTIX [Suspect]
     Indication: SMOKING CESSATION THERAPY
     Dosage: UNK
     Dates: start: 20070422, end: 20070714
  2. MOTRIN [Suspect]
     Indication: CHEST PAIN
     Dosage: UNK
     Dates: start: 20070101
  3. ACETYLSALICYLIC ACID [Concomitant]
     Dosage: UNK
  4. CALCIUM [Concomitant]
     Dosage: UNK
  5. ALL OTHER THERAPEUTIC PRODUCTS [Concomitant]
     Dosage: UNK

REACTIONS (5)
  - ARTHRALGIA [None]
  - CHEST EXPANSION DECREASED [None]
  - CHEST PAIN [None]
  - ECG SIGNS OF MYOCARDIAL ISCHAEMIA [None]
  - MYALGIA [None]
